FAERS Safety Report 8395204-X (Version None)
Quarter: 2012Q1

REPORT INFORMATION
  Report Type: 
  Country: None (occurrence: None)
  Receive Date: 20120323
  Receipt Date: 20110228
  Transmission Date: 20120608
  Serious: Yes (Hospitalization, Disabling, Other)
  Sender: FDA-Public Use
  Company Number: 163-21880-11030245

PATIENT
  Age: 84 Year
  Sex: Female

DRUGS (6)
  1. PROTONIX [Concomitant]
  2. REVLIMID [Suspect]
     Indication: MULTIPLE MYELOMA
     Dosage: 5 MG, 21/7, PO
     Route: 048
     Dates: start: 20110212, end: 20110213
  3. CLONIDINE [Concomitant]
  4. MEGACE [Concomitant]
  5. COREG [Concomitant]
  6. NEPHRO-VIT E (NEPHROVITE) [Concomitant]

REACTIONS (2)
  - RENAL FAILURE [None]
  - RASH [None]
